FAERS Safety Report 6903098-1 (Version None)
Quarter: 2010Q3

REPORT INFORMATION
  Report Type: 
  Country: None (occurrence: None)
  Receive Date: 20100803
  Receipt Date: 20080708
  Transmission Date: 20110219
  Serious: No
  Sender: FDA-Public Use
  Company Number: US-PFIZER INC-2008058497

PATIENT
  Age: 51 Year
  Sex: Female

DRUGS (7)
  1. LYRICA [Suspect]
     Indication: FIBROMYALGIA
     Dates: start: 20080501
  2. OXYCONTIN [Concomitant]
  3. VALSARTAN [Concomitant]
  4. HYDROCHLOROTHIAZIDE [Concomitant]
  5. TOPROL-XL [Concomitant]
  6. ANXIOLYTICS [Concomitant]
  7. ALL OTHER THERAPEUTIC PRODUCTS [Concomitant]

REACTIONS (8)
  - CHEST DISCOMFORT [None]
  - FATIGUE [None]
  - HEADACHE [None]
  - HYPOAESTHESIA [None]
  - OEDEMA PERIPHERAL [None]
  - SEDATION [None]
  - SOMNOLENCE [None]
  - WEIGHT INCREASED [None]
